FAERS Safety Report 8356497-8 (Version None)
Quarter: 2012Q2

REPORT INFORMATION
  Report Type: 
  Country: None (occurrence: None)
  Receive Date: 20120511
  Receipt Date: 20120511
  Transmission Date: 20120825
  Serious: Yes (Hospitalization)
  Sender: FDA-Public Use
  Company Number: None

PATIENT
  Sex: Female
  Weight: 60.3284 kg

DRUGS (1)
  1. FORTEO [Suspect]
     Indication: OSTEOPOROSIS
     Dosage: 20MCG QD SQ
     Route: 058
     Dates: start: 20110801

REACTIONS (8)
  - FATIGUE [None]
  - RECTAL HAEMORRHAGE [None]
  - DIVERTICULITIS [None]
  - HERNIA [None]
  - GASTROINTESTINAL ULCER HAEMORRHAGE [None]
  - GASTROOESOPHAGEAL REFLUX DISEASE [None]
  - POLYP [None]
  - HAEMORRHOIDS [None]
